FAERS Safety Report 23473962 (Version 3)
Quarter: 2024Q1

REPORT INFORMATION
  Report Type: Spontaneous
  Country: KR (occurrence: KR)
  Receive Date: 20240203
  Receipt Date: 20240304
  Transmission Date: 20240410
  Serious: Yes (Hospitalization)
  Sender: FDA-Public Use
  Company Number: KR-KOWA-24JP000112AA

PATIENT
  Age: 60 Year
  Sex: Male
  Weight: 72.05 kg

DRUGS (4)
  1. LIVALO [Suspect]
     Active Substance: PITAVASTATIN CALCIUM
     Indication: Dyslipidaemia
     Dosage: 2 MG, QD
     Route: 048
     Dates: start: 20230524
  2. COLCHICINE [Concomitant]
     Active Substance: COLCHICINE
     Indication: Prophylaxis
     Dosage: 0.6 MG, QD
     Route: 048
     Dates: start: 20230915
  3. Epaminurad [Concomitant]
     Indication: Gout
     Dosage: UNK, UNK
     Route: 048
     Dates: start: 20230922
  4. FEBUXOSTAT [Concomitant]
     Active Substance: FEBUXOSTAT
     Indication: Gout
     Dosage: UNK, UNK
     Route: 048
     Dates: start: 20230922

REACTIONS (2)
  - Aspartate aminotransferase increased [Recovered/Resolved]
  - Urinary tract infection [Recovered/Resolved]

NARRATIVE: CASE EVENT DATE: 20240118
